FAERS Safety Report 19912842 (Version 1)
Quarter: 2021Q4

REPORT INFORMATION
  Report Type: Spontaneous
  Country: US (occurrence: US)
  Receive Date: 20211004
  Receipt Date: 20211004
  Transmission Date: 20220303
  Serious: Yes (Other)
  Sender: FDA-Public Use
  Company Number: None

PATIENT
  Age: 56 Year
  Sex: Male
  Weight: 180 kg

DRUGS (7)
  1. LEVOTHYROXINE [Suspect]
     Active Substance: LEVOTHYROXINE
  2. MODERNA COVID-19 VACCINE [Suspect]
     Active Substance: CX-024414
  3. SPIRONOLACTONE [Concomitant]
     Active Substance: SPIRONOLACTONE
  4. KOZAR [Concomitant]
  5. FLAX SEED OILS [Concomitant]
  6. CENTRUM FOR MEN [Concomitant]
  7. SELENIUM [Concomitant]
     Active Substance: SELENIUM

REACTIONS (5)
  - Mood swings [None]
  - Feeling abnormal [None]
  - Balance disorder [None]
  - Drug ineffective [None]
  - COVID-19 immunisation [None]

NARRATIVE: CASE EVENT DATE: 20211001
